FAERS Safety Report 24767904 (Version 1)
Quarter: 2024Q4

REPORT INFORMATION
  Report Type: Spontaneous
  Country: US (occurrence: US)
  Receive Date: 20241223
  Receipt Date: 20241223
  Transmission Date: 20250114
  Serious: No
  Sender: PFIZER
  Company Number: US-PFIZER INC-202400324878

PATIENT
  Age: 82 Year
  Sex: Male

DRUGS (2)
  1. BRAFTOVI [Suspect]
     Active Substance: ENCORAFENIB
     Dosage: 6 CAPS (450 MG) PO TWICE DAILY, 1 MONTH W/ 5RF
     Route: 048
     Dates: end: 20241209
  2. MEKTOVI [Suspect]
     Active Substance: BINIMETINIB
     Dosage: 45 MG, 2X/DAY (TAKE 3 TABLETS (45MG) TWICE DAILY WITH OR WITHOUT FOOD)
     Dates: end: 20241209

REACTIONS (2)
  - Fluid retention [Unknown]
  - Off label use [Unknown]
